FAERS Safety Report 5810046-4 (Version None)
Quarter: 2008Q3

REPORT INFORMATION
  Report Type: 
  Country: None (occurrence: None)
  Receive Date: 20080715
  Receipt Date: 20080714
  Transmission Date: 20090109
  Serious: Yes (Other)
  Sender: FDA-Public Use
  Company Number: A0737507A

PATIENT
  Age: 46 Year
  Sex: Female

DRUGS (3)
  1. TREXIMET [Suspect]
     Indication: DRUG USE FOR UNKNOWN INDICATION
     Route: 065
  2. TOPAMAX [Concomitant]
  3. CELEXA [Concomitant]
     Route: 065

REACTIONS (3)
  - ARTERIOSPASM CORONARY [None]
  - CHEST DISCOMFORT [None]
  - MYOCARDIAL INFARCTION [None]
